FAERS Safety Report 12174703 (Version 2)
Quarter: 2016Q1

REPORT INFORMATION
  Report Type: Spontaneous
  Country: DE (occurrence: DE)
  Receive Date: 20160313
  Receipt Date: 20160322
  Transmission Date: 20160526
  Serious: Yes (Life-Threatening, Other)
  Sender: FDA-Public Use
  Company Number: DE-B.I. PHARMACEUTICALS,INC./RIDGEFIELD-2016-BI-14907DE

PATIENT
  Sex: Male

DRUGS (3)
  1. TAVANIC [Suspect]
     Active Substance: LEVOFLOXACIN
     Indication: PRODUCT USED FOR UNKNOWN INDICATION
     Route: 065
  2. PRADAXA [Suspect]
     Active Substance: DABIGATRAN ETEXILATE MESYLATE
     Indication: PRODUCT USED FOR UNKNOWN INDICATION
     Route: 065
  3. PRAXBIND [Suspect]
     Active Substance: IDARUCIZUMAB
     Indication: PRODUCT USED FOR UNKNOWN INDICATION
     Route: 065

REACTIONS (9)
  - Pulmonary sepsis [Unknown]
  - Pneumonia [Unknown]
  - Viral rash [Unknown]
  - Respiratory failure [Unknown]
  - Haemothorax [Unknown]
  - Dyspnoea [Unknown]
  - Rash [Unknown]
  - Acute kidney injury [Unknown]
  - Drug hypersensitivity [Unknown]
